FAERS Safety Report 5177008-4 (Version None)
Quarter: 2006Q4

REPORT INFORMATION
  Report Type: 
  Country: None (occurrence: None)
  Receive Date: 20061218
  Receipt Date: 20061212
  Transmission Date: 20070319
  Serious: Yes (Other)
  Sender: FDA-Public Use
  Company Number: US-GLAXOSMITHKLINE-A0631432A

PATIENT
  Age: 63 Year
  Sex: Female

DRUGS (15)
  1. SEREVENT [Suspect]
     Indication: ASTHMA
     Dosage: 50MCG TWICE PER DAY
     Route: 055
  2. ZYRTEC [Concomitant]
  3. ASTELIN [Concomitant]
  4. QVAR 40 [Concomitant]
  5. NORVASC [Concomitant]
  6. BACLOFEN [Concomitant]
  7. AMANTADINE HCL [Concomitant]
  8. FLONASE [Concomitant]
  9. UNKNOWN MEDICATION [Concomitant]
  10. ALOMIDE [Concomitant]
  11. MAXAIR [Concomitant]
  12. DIOVAN [Concomitant]
  13. AVONEX [Concomitant]
  14. DITROPAN XL [Concomitant]
  15. TRIMETHOPRIN [Concomitant]

REACTIONS (2)
  - PHARMACEUTICAL PRODUCT COMPLAINT [None]
  - RESPIRATORY DISTRESS [None]
